FAERS Safety Report 26171184 (Version 1)
Quarter: 2025Q4

REPORT INFORMATION
  Report Type: Spontaneous
  Country: US (occurrence: None)
  Receive Date: 20251217
  Receipt Date: 20251217
  Transmission Date: 20260118
  Serious: Yes (Hospitalization, Other)
  Sender: FDA-CTU
  Company Number: None

PATIENT
  Age: 64 Year
  Sex: Female
  Weight: 73.8 kg

DRUGS (6)
  1. LEQEMBI [Suspect]
     Active Substance: LECANEMAB-IRMB
     Indication: Dementia Alzheimer^s type
     Dosage: OTHER QUANTITY : 1 INJECTION(S);?OTHER FREQUENCY : EVERY 2 WEEKS;
     Route: 042
     Dates: start: 20250909, end: 20251104
  2. GABAPENTIN [Concomitant]
     Active Substance: GABAPENTIN
  3. Rivastigmine transdermal system 9.5mg / 24 hours [Concomitant]
  4. FOLIC ACID [Concomitant]
     Active Substance: FOLIC ACID
  5. B5 100mg [Concomitant]
  6. B12 3000mcg [Concomitant]

REACTIONS (6)
  - Personality change [None]
  - Memory impairment [None]
  - Hallucinations, mixed [None]
  - Patient elopement [None]
  - Aggression [None]
  - Hypophagia [None]

NARRATIVE: CASE EVENT DATE: 20251115
